FAERS Safety Report 9055788 (Version 1)
Quarter: 2013Q1

REPORT INFORMATION
  Report Type: Spontaneous
  Country: BR (occurrence: BR)
  Receive Date: 20130206
  Receipt Date: 20130206
  Transmission Date: 20140127
  Serious: Yes (Death, Hospitalization)
  Sender: FDA-Public Use
  Company Number: BR-B.I. PHARMACEUTICALS,INC./RIDGEFIELD-2013-BR-00084BR

PATIENT
  Age: 85 Year
  Sex: Female
  Weight: 65 kg

DRUGS (4)
  1. MICARDIS HCT [Suspect]
     Indication: HYPERTENSION
     Route: 048
     Dates: start: 20080115, end: 20121225
  2. SIMVASTATINE [Concomitant]
     Indication: BLOOD CHOLESTEROL
     Dates: start: 2011, end: 20121225
  3. INFANTILE ACETYLSALICYLIC ACID [Concomitant]
     Indication: ANTICOAGULANT THERAPY
     Dates: start: 2002, end: 20121225
  4. APRESOLINE [Concomitant]
     Indication: HYPERTENSION
     Dates: start: 2011, end: 20121225

REACTIONS (5)
  - Acute myocardial infarction [Fatal]
  - Chest pain [Not Recovered/Not Resolved]
  - Hyperhidrosis [Not Recovered/Not Resolved]
  - Retching [Not Recovered/Not Resolved]
  - Cardio-respiratory arrest [Not Recovered/Not Resolved]
